FAERS Safety Report 22280565 (Version 1)
Quarter: 2023Q2

REPORT INFORMATION
  Report Type: Spontaneous
  Country: CA (occurrence: CA)
  Receive Date: 20230503
  Receipt Date: 20230503
  Transmission Date: 20230722
  Serious: Yes (Death)
  Sender: FDA-Public Use
  Company Number: CA-BAYER-2023A060717

PATIENT
  Age: 39 Year
  Sex: Male

DRUGS (2)
  1. SORAFENIB [Suspect]
     Active Substance: SORAFENIB
     Indication: Hepatocellular carcinoma
     Dosage: 200 MG, BID
  2. LENVATINIB [Concomitant]
     Active Substance: LENVATINIB
     Dosage: 8 MG, QD

REACTIONS (3)
  - Hepatocellular carcinoma [Fatal]
  - Pain [None]
  - Hepatic function abnormal [None]
